FAERS Safety Report 8897983 (Version 1)
Quarter: 2012Q4

REPORT INFORMATION
  Report Type: 
  Country: US (occurrence: US)
  Receive Date: 20121108
  Receipt Date: 20121108
  Transmission Date: 20130627
  Serious: No
  Sender: FDA-Public Use
  Company Number: US-AMGEN-USASP2012033012

PATIENT
  Age: 61 Year
  Sex: Female
  Weight: 65.76 kg

DRUGS (12)
  1. ENBREL [Suspect]
     Indication: RHEUMATOID ARTHRITIS
     Dosage: 50 mg, qwk
     Route: 058
  2. CYMBALTA [Concomitant]
     Dosage: 20 mg, UNK
     Route: 048
  3. ATIVAN [Concomitant]
     Dosage: 1 mg, UNK
     Route: 048
  4. AMBIEN [Concomitant]
     Dosage: 5 mg, UNK
     Route: 048
  5. SOMA CMPD [Concomitant]
     Dosage: UNK
     Route: 048
  6. PREDNISONE [Concomitant]
     Dosage: 10 mg, UNK
     Route: 048
  7. SYNTHROID [Concomitant]
     Dosage: 100 mug, UNK
     Route: 048
  8. NADOLOL [Concomitant]
     Dosage: 120 mg, UNK
     Route: 048
  9. OXYCODONE [Concomitant]
     Dosage: 5 mg, UNK
     Route: 048
  10. VITAMIN B-12 [Concomitant]
     Dosage: 500 mug, UNK
     Route: 048
  11. FOLIC ACID [Concomitant]
     Dosage: UNK
     Route: 048
  12. CORTISONE [Concomitant]
     Dosage: 1 UNK, UNK

REACTIONS (3)
  - Injection site erythema [Unknown]
  - Injection site warmth [Unknown]
  - Injection site pruritus [Unknown]
